FAERS Safety Report 15473032 (Version 2)
Quarter: 2018Q4

REPORT INFORMATION
  Report Type: Spontaneous
  Country: SE (occurrence: SE)
  Receive Date: 20181008
  Receipt Date: 20181013
  Transmission Date: 20190205
  Serious: Yes (Death, Life-Threatening)
  Sender: FDA-Public Use
  Company Number: SE-009507513-1809SWE003521

PATIENT
  Age: 72 Year
  Sex: Male

DRUGS (15)
  1. OMEPRAZOLE. [Concomitant]
     Active Substance: OMEPRAZOLE
  2. ALVEDON [Concomitant]
     Active Substance: ACETAMINOPHEN
  3. FRAGMIN [Concomitant]
     Active Substance: DALTEPARIN SODIUM
  4. PEMBROLIZUMAB. [Suspect]
     Active Substance: PEMBROLIZUMAB
     Indication: MALIGNANT MELANOMA
     Dosage: UNK
     Dates: start: 20170809, end: 20180309
  5. FURIX [Concomitant]
     Active Substance: FUROSEMIDE
  6. NOVORAPID [Concomitant]
     Active Substance: INSULIN ASPART
  7. BACTRIM [Suspect]
     Active Substance: SULFAMETHOXAZOLE\TRIMETHOPRIM
     Dosage: UNK UNK, QD
     Dates: start: 20180807
  8. TAVEGYL [Concomitant]
     Active Substance: CLEMASTINE FUMARATE
  9. OXASCAND [Concomitant]
     Active Substance: OXAZEPAM
  10. HALDOL [Concomitant]
     Active Substance: HALOPERIDOL
  11. ELOCON [Concomitant]
     Active Substance: MOMETASONE FUROATE
  12. MICROLAX (SODIUM LAURYL SULFOACETATE (+) SORBITOL) [Concomitant]
  13. PREDNISOLONE. [Suspect]
     Active Substance: PREDNISOLONE
     Dosage: 6 DF, QD
     Route: 048
     Dates: start: 20180327
  14. ATIVAN [Concomitant]
     Active Substance: LORAZEPAM
  15. MORFIN [Concomitant]
     Active Substance: MORPHINE SULFATE

REACTIONS (1)
  - Stevens-Johnson syndrome [Fatal]

NARRATIVE: CASE EVENT DATE: 20180807
